FAERS Safety Report 10260192 (Version 1)
Quarter: 2014Q2

REPORT INFORMATION
  Report Type: Report from Study
  Country: GB (occurrence: GB)
  Receive Date: 20140625
  Receipt Date: 20140625
  Transmission Date: 20141212
  Serious: Yes (Other)
  Sender: FDA-Public Use
  Company Number: GB-ABBVIE-14P-167-1250003-00

PATIENT
  Age: 31 Year
  Sex: Female

DRUGS (1)
  1. HUMIRA [Suspect]
     Indication: PRODUCT USED FOR UNKNOWN INDICATION
     Route: 065
     Dates: start: 20140319

REACTIONS (7)
  - Frustration [Unknown]
  - Cough [Unknown]
  - Chest pain [Unknown]
  - Anxiety [Unknown]
  - Anger [Unknown]
  - Increased tendency to bruise [Unknown]
  - Liver function test abnormal [Unknown]
